FAERS Safety Report 7013951-9 (Version None)
Quarter: 2010Q3

REPORT INFORMATION
  Report Type: 
  Country: None (occurrence: None)
  Receive Date: 20100924
  Receipt Date: 20100917
  Transmission Date: 20110219
  Serious: Yes (Hospitalization)
  Sender: FDA-Public Use
  Company Number: NL-AMGEN-QUU440310

PATIENT
  Age: 31 Year
  Sex: Female

DRUGS (2)
  1. ENBREL [Suspect]
     Indication: RHEUMATOID ARTHRITIS
     Dates: start: 20051031, end: 20070517
  2. ENBREL [Suspect]
     Dates: start: 20100518, end: 20100817

REACTIONS (2)
  - PLEURISY [None]
  - PULMONARY EMBOLISM [None]
